FAERS Safety Report 19606291 (Version 5)
Quarter: 2022Q2

REPORT INFORMATION
  Report Type: Spontaneous
  Country: US (occurrence: US)
  Receive Date: 20210725
  Receipt Date: 20220411
  Transmission Date: 20220721
  Serious: No
  Sender: FDA-Public Use
  Company Number: US-SA-SAC00000000048672

PATIENT
  Age: 60 Year
  Sex: Female

DRUGS (2)
  1. FABRAZYME [Suspect]
     Active Substance: AGALSIDASE BETA
     Indication: Fabry^s disease
     Dosage: 75 MG, QOW
     Route: 042
     Dates: start: 20190212
  2. FABRAZYME [Suspect]
     Active Substance: AGALSIDASE BETA
     Dosage: 75 MG, QOW
     Route: 042
     Dates: start: 20191203

REACTIONS (7)
  - Stress [Unknown]
  - Condition aggravated [Unknown]
  - Arterial occlusive disease [Recovering/Resolving]
  - Chest pain [Unknown]
  - Blood pressure increased [Unknown]
  - Pain in extremity [Unknown]
  - Muscle spasms [Unknown]
